FAERS Safety Report 24790054 (Version 1)
Quarter: 2024Q4

REPORT INFORMATION
  Report Type: Spontaneous
  Country: CA (occurrence: CA)
  Receive Date: 20241230
  Receipt Date: 20241230
  Transmission Date: 20250114
  Serious: Yes (Other)
  Sender: PFIZER
  Company Number: CA-PFIZER INC-202300083027

PATIENT
  Age: 79 Year
  Sex: Female

DRUGS (3)
  1. RUXIENCE [Suspect]
     Active Substance: RITUXIMAB-PVVR
     Indication: Rheumatoid arthritis
     Dosage: 1000 MG, DAY1 AND DAY 15
     Route: 042
     Dates: start: 20230302, end: 20230316
  2. RUXIENCE [Suspect]
     Active Substance: RITUXIMAB-PVVR
     Dosage: 1000 MG, DAY1 AND DAY 15
     Route: 042
     Dates: start: 20230906
  3. RUXIENCE [Suspect]
     Active Substance: RITUXIMAB-PVVR
     Dosage: 1000 MG, DAY1 AND DAY 15
     Route: 042
     Dates: start: 20230920

REACTIONS (4)
  - Foot fracture [Unknown]
  - Ligament rupture [Unknown]
  - Pyrexia [Recovered/Resolved]
  - Condition aggravated [Unknown]
